FAERS Safety Report 7082530-X (Version None)
Quarter: 2010Q4

REPORT INFORMATION
  Report Type: 
  Country: None (occurrence: None)
  Receive Date: 20101104
  Receipt Date: 20101027
  Transmission Date: 20110411
  Serious: Yes (Hospitalization, Other)
  Sender: FDA-Public Use
  Company Number: US-BAYER-201037738NA

PATIENT
  Age: 67 Year
  Sex: Male

DRUGS (1)
  1. MAGNEVIST [Suspect]
     Indication: NUCLEAR MAGNETIC RESONANCE IMAGING
     Dosage: TOTAL DAILY DOSE: 19 ML  UNIT DOSE: 50 ML
     Dates: start: 20101020, end: 20101020

REACTIONS (4)
  - ANAPHYLACTIC REACTION [None]
  - FEELING COLD [None]
  - LOSS OF CONSCIOUSNESS [None]
  - PARAESTHESIA [None]
